FAERS Safety Report 25492827 (Version 1)
Quarter: 2025Q2

REPORT INFORMATION
  Report Type: Other
  Country: FR (occurrence: FR)
  Receive Date: 20250630
  Receipt Date: 20250630
  Transmission Date: 20250716
  Serious: Yes (Congenital Anomaly)
  Sender: ZYDUS PHARM
  Company Number: None

PATIENT

DRUGS (2)
  1. BISOPROLOL [Suspect]
     Active Substance: BISOPROLOL
     Indication: Restrictive cardiomyopathy
     Route: 064
     Dates: start: 20240909, end: 20250409
  2. FUROSEMIDE [Suspect]
     Active Substance: FUROSEMIDE
     Indication: Restrictive cardiomyopathy
     Route: 064
     Dates: start: 20240909, end: 20250409

REACTIONS (2)
  - Poland^s syndrome [Not Recovered/Not Resolved]
  - Foetal exposure during pregnancy [Not Recovered/Not Resolved]

NARRATIVE: CASE EVENT DATE: 20250507
